FAERS Safety Report 9726167 (Version 1)
Quarter: 2013Q4

REPORT INFORMATION
  Report Type: Spontaneous
  Country: FI (occurrence: None)
  Receive Date: 20131127
  Receipt Date: 20131127
  Transmission Date: 20140711
  Serious: Yes (Hospitalization)
  Sender: FDA-Public Use
  Company Number: FI-DEXPHARM-20131008

PATIENT
  Sex: Female

DRUGS (1)
  1. CHLORHEXIDINE [Suspect]
     Indication: DRUG ADMINISTRATION ERROR

REACTIONS (9)
  - Drooling [None]
  - Pain [None]
  - Dysphagia [None]
  - Mouth ulceration [None]
  - Vomiting [None]
  - Drug administration error [None]
  - Gastrointestinal mucosal exfoliation [None]
  - Chemical burn of gastrointestinal tract [None]
  - Wrong drug administered [None]
